FAERS Safety Report 16909491 (Version 5)
Quarter: 2019Q4

REPORT INFORMATION
  Report Type: Spontaneous
  Country: JP (occurrence: JP)
  Receive Date: 20191011
  Receipt Date: 20191227
  Transmission Date: 20200122
  Serious: Yes (Other)
  Sender: FDA-Public Use
  Company Number: JP-AMGEN-JPNSP2019150784

PATIENT
  Age: 88 Year
  Sex: Female
  Weight: 38 kg

DRUGS (9)
  1. PRALIA [Suspect]
     Active Substance: DENOSUMAB
     Indication: PRODUCT USED FOR UNKNOWN INDICATION
     Dosage: UNK
     Route: 065
  2. EDIROL [Concomitant]
     Active Substance: ELDECALCITOL
     Dosage: 0.75 MICROGRAM, QD
     Dates: start: 201403
  3. CLOPIDOGREL [Concomitant]
     Active Substance: CLOPIDOGREL BISULFATE
     Dosage: 75 MILLIGRAM, QD
     Dates: start: 201906
  4. AZILVA [Concomitant]
     Active Substance: AZILSARTAN KAMEDOXOMIL
     Dosage: 20 MILLIGRAM, QD
     Dates: start: 201906
  5. CILNIDIPINE [Concomitant]
     Active Substance: CILNIDIPINE
     Dosage: 10 MILLIGRAM, QD
     Dates: start: 201906
  6. MAGMITT [Concomitant]
     Active Substance: MAGNESIUM OXIDE
     Dosage: 330 MILLIGRAM, TID
     Dates: start: 201204
  7. BIO-THREE [Concomitant]
     Active Substance: HERBALS
     Dosage: UNK UNK, TID
     Dates: start: 201110
  8. PRALIA [Suspect]
     Active Substance: DENOSUMAB
  9. EVENITY [Suspect]
     Active Substance: ROMOSOZUMAB-AQQG
     Indication: OSTEOPOROSIS
     Dosage: 210 MILLIGRAM
     Route: 058
     Dates: start: 20190415, end: 20190805

REACTIONS (3)
  - Cerebral infarction [Not Recovered/Not Resolved]
  - Sinus node dysfunction [Unknown]
  - Nausea [Unknown]

NARRATIVE: CASE EVENT DATE: 201405
